FAERS Safety Report 14619896 (Version 1)
Quarter: 2018Q1

REPORT INFORMATION
  Report Type: Spontaneous
  Country: US (occurrence: US)
  Receive Date: 20180309
  Receipt Date: 20180309
  Transmission Date: 20180509
  Serious: Yes (Other)
  Sender: FDA-Public Use
  Company Number: US-PFIZER INC-2018091371

PATIENT
  Age: 73 Year
  Sex: Male
  Weight: 88.44 kg

DRUGS (1)
  1. VIAGRA [Suspect]
     Active Substance: SILDENAFIL CITRATE
     Indication: ERECTILE DYSFUNCTION
     Dosage: 50 MG, AS NEEDED (TAKES HALF OF THE 100 MG TABLETS)
     Route: 048
     Dates: end: 201802

REACTIONS (1)
  - Penile haemorrhage [Recovered/Resolved]

NARRATIVE: CASE EVENT DATE: 2017
